FAERS Safety Report 15459538 (Version 1)
Quarter: 2018Q4

REPORT INFORMATION
  Report Type: Spontaneous
  Country: IN (occurrence: IN)
  Receive Date: 20181003
  Receipt Date: 20181003
  Transmission Date: 20190204
  Serious: Yes (Other)
  Sender: FDA-Public Use
  Company Number: IN-GLAXOSMITHKLINE-IN2018177939

PATIENT

DRUGS (4)
  1. VOVERAN [Suspect]
     Active Substance: DICLOFENAC SODIUM
     Indication: INTERVERTEBRAL DISC DEGENERATION
  2. VOVERAN [Suspect]
     Active Substance: DICLOFENAC SODIUM
     Indication: FRACTURE
     Dosage: UNK
     Route: 048
  3. VOVERAN [Suspect]
     Active Substance: DICLOFENAC SODIUM
     Indication: OSTEOARTHRITIS
     Dosage: UNK
     Route: 042
  4. VOVERAN [Suspect]
     Active Substance: DICLOFENAC SODIUM
     Indication: BACK PAIN
     Dosage: UNK
     Route: 030

REACTIONS (2)
  - Gastritis [Unknown]
  - Gastric haemorrhage [Unknown]
